FAERS Safety Report 25369217 (Version 4)
Quarter: 2025Q3

REPORT INFORMATION
  Report Type: Report from Study
  Country: EU (occurrence: EU)
  Receive Date: 20250528
  Receipt Date: 20250906
  Transmission Date: 20251020
  Serious: Yes (Other)
  Sender: UCB
  Company Number: EU-UCBSA-2025014597

PATIENT
  Age: 24 Year
  Sex: Female
  Weight: 60 kg

DRUGS (3)
  1. BIMEKIZUMAB [Suspect]
     Active Substance: BIMEKIZUMAB
     Indication: Axial spondyloarthritis
     Dosage: 160 MILLIGRAM, MONTHLY (QM)
     Route: 058
     Dates: start: 20241205, end: 20241205
  2. BIMEKIZUMAB [Suspect]
     Active Substance: BIMEKIZUMAB
     Dosage: 160 MILLIGRAM, MONTHLY (QM)
     Route: 058
     Dates: start: 20250110, end: 20250110
  3. NAPROXEN [Concomitant]
     Active Substance: NAPROXEN
     Indication: Product used for unknown indication
     Dosage: 550 MILLIGRAM, ONCE DAILY (QD)
     Dates: start: 20250616, end: 20250619

REACTIONS (4)
  - Inflammatory bowel disease [Unknown]
  - Dactylitis [Unknown]
  - Sinusitis [Not Recovered/Not Resolved]
  - Infectious mononucleosis [Not Recovered/Not Resolved]

NARRATIVE: CASE EVENT DATE: 20241230
